FAERS Safety Report 22358458 (Version 1)
Quarter: 2023Q2

REPORT INFORMATION
  Report Type: Other
  Country: US (occurrence: None)
  Receive Date: 20230524
  Receipt Date: 20230524
  Transmission Date: 20230721
  Serious: No
  Sender: FDA-Public Use
  Company Number: US-ROCHE-3351312

PATIENT
  Age: 55 Year
  Sex: Female
  Weight: 112.59 kg

DRUGS (1)
  1. OCREVUS [Suspect]
     Active Substance: OCRELIZUMAB
     Indication: Relapsing-remitting multiple sclerosis
     Dosage: UNKNOWN
     Route: 042
     Dates: start: 20211008

REACTIONS (2)
  - Pain in extremity [Unknown]
  - COVID-19 [Recovered/Resolved]
